FAERS Safety Report 24687594 (Version 1)
Quarter: 2024Q4

REPORT INFORMATION
  Report Type: Spontaneous
  Country: US (occurrence: None)
  Receive Date: 20241202
  Receipt Date: 20241202
  Transmission Date: 20250114
  Serious: Yes (unspecified)
  Sender: Public
  Company Number: None

PATIENT
  Age: 44 Year
  Sex: Male
  Weight: 79.4 kg

DRUGS (1)
  1. TEPEZZA [Suspect]
     Active Substance: TEPROTUMUMAB-TRBW
     Indication: Endocrine ophthalmopathy
     Dosage: 1540 MG EV ERY 3 WEEKS INTRAVENOUS
     Route: 042
     Dates: start: 20241008, end: 20241029

REACTIONS (1)
  - Deafness [None]

NARRATIVE: CASE EVENT DATE: 20241111
